FAERS Safety Report 5267808-4 (Version None)
Quarter: 2007Q1

REPORT INFORMATION
  Report Type: 
  Country: None (occurrence: None)
  Receive Date: 20070316
  Receipt Date: 20070306
  Transmission Date: 20070707
  Serious: Yes (Hospitalization)
  Sender: FDA-Public Use
  Company Number: FR-PFIZER INC-2007018189

PATIENT
  Sex: Female
  Weight: 2.89 kg

DRUGS (5)
  1. TAHOR [Suspect]
  2. INDORAMIN [Suspect]
  3. NOCERTONE [Suspect]
     Indication: MIGRAINE
  4. PLAVIX [Suspect]
  5. LOVENOX [Concomitant]

REACTIONS (4)
  - ANAL ATRESIA [None]
  - DRUG EXPOSURE DURING PREGNANCY [None]
  - GASTROINTESTINAL MALFORMATION [None]
  - MULTIPLE CONGENITAL ABNORMALITIES [None]
